FAERS Safety Report 22154577 (Version 1)
Quarter: 2023Q1

REPORT INFORMATION
  Report Type: Other
  Country: AE (occurrence: None)
  Receive Date: 20230330
  Receipt Date: 20230330
  Transmission Date: 20230417
  Serious: Yes (Other)
  Sender: FDA-Public Use
  Company Number: AE-ROCHE-3316084

PATIENT
  Sex: Female

DRUGS (1)
  1. OCREVUS [Suspect]
     Active Substance: OCRELIZUMAB
     Indication: Relapsing multiple sclerosis
     Dosage: LAST DOSE WAS DURING END OF MAY 2022
     Route: 042

REACTIONS (2)
  - Urinary tract infection [Not Recovered/Not Resolved]
  - Neuralgia [Not Recovered/Not Resolved]
